FAERS Safety Report 5815004-1 (Version None)
Quarter: 2008Q3

REPORT INFORMATION
  Report Type: 
  Country: None (occurrence: None)
  Receive Date: 20080718
  Receipt Date: 20080715
  Transmission Date: 20090109
  Serious: Yes (Other)
  Sender: FDA-Public Use
  Company Number: A0737742A

PATIENT
  Age: 75 Year
  Sex: Female

DRUGS (2)
  1. LANOXIN [Suspect]
     Dosage: 1TAB PER DAY
     Route: 048
     Dates: start: 20080101
  2. INSULIN [Concomitant]

REACTIONS (8)
  - ANOREXIA [None]
  - ASTHENIA [None]
  - COUGH [None]
  - DISABILITY [None]
  - DRUG HYPERSENSITIVITY [None]
  - FATIGUE [None]
  - HEPATIC ENZYME INCREASED [None]
  - RENAL IMPAIRMENT [None]
